FAERS Safety Report 25789300 (Version 1)
Quarter: 2025Q3

REPORT INFORMATION
  Report Type: Report from Study
  Country: CA (occurrence: CA)
  Receive Date: 20250911
  Receipt Date: 20250911
  Transmission Date: 20251020
  Serious: Yes (Other)
  Sender: CELLTRION
  Company Number: CA-CELLTRION INC.-2025CA031969

PATIENT

DRUGS (23)
  1. RITUXIMAB [Suspect]
     Active Substance: RITUXIMAB
     Indication: Rheumatoid arthritis
     Route: 042
  2. RITUXIMAB [Suspect]
     Active Substance: RITUXIMAB
     Route: 042
  3. ACTEMRA [Suspect]
     Active Substance: TOCILIZUMAB
     Indication: Rheumatoid arthritis
     Dosage: 162 MILLIGRAM, Q2WEEKS
     Route: 058
  4. ACRIVASTINE [Concomitant]
     Active Substance: ACRIVASTINE
     Route: 048
  5. ALENDRONATE SODIUM\CHOLECALCIFEROL [Concomitant]
     Active Substance: ALENDRONATE SODIUM\CHOLECALCIFEROL
  6. CALCIUM PHOSPHATE/VITAMIN K1 [Concomitant]
  7. CELEBREX [Concomitant]
     Active Substance: CELECOXIB
  8. CYMBALTA [Concomitant]
     Active Substance: DULOXETINE HYDROCHLORIDE
  9. DESOXIMETASONE [Concomitant]
     Active Substance: DESOXIMETASONE
  10. FOLIC ACID [Concomitant]
     Active Substance: FOLIC ACID
  11. LYRICA [Concomitant]
     Active Substance: PREGABALIN
  12. MAGNESIUM [Concomitant]
     Active Substance: MAGNESIUM
  13. METHOTREXATE [Concomitant]
     Active Substance: METHOTREXATE
  14. METHYLPREDNISOLONE SODIUM SUCCINATE [Concomitant]
     Active Substance: METHYLPREDNISOLONE SODIUM SUCCINATE
     Route: 042
  15. NAPROXEN [Concomitant]
     Active Substance: NAPROXEN
  16. PREDNISONE [Concomitant]
     Active Substance: PREDNISONE
  17. PANTOPRAZOLE MAGNESIUM [Concomitant]
     Active Substance: PANTOPRAZOLE MAGNESIUM
  18. TRAZODONE [Concomitant]
     Active Substance: TRAZODONE HYDROCHLORIDE
  19. TYLENOL [Concomitant]
     Active Substance: ACETAMINOPHEN
     Route: 048
  20. UBIDECARENONE [Concomitant]
     Active Substance: UBIDECARENONE
  21. VITAMIN A [Concomitant]
     Active Substance: VITAMIN A
  22. ASCORBIC ACID [Concomitant]
     Active Substance: ASCORBIC ACID
  23. VITAMIN D NOS [Concomitant]
     Active Substance: CHOLECALCIFEROL\ERGOCALCIFEROL

REACTIONS (5)
  - Weight increased [Not Recovered/Not Resolved]
  - Arthralgia [Not Recovered/Not Resolved]
  - Pneumonia [Not Recovered/Not Resolved]
  - Underdose [Unknown]
  - Intentional product use issue [Unknown]
